FAERS Safety Report 24155592 (Version 1)
Quarter: 2024Q3

REPORT INFORMATION
  Report Type: Spontaneous
  Country: CN (occurrence: CN)
  Receive Date: 20240731
  Receipt Date: 20240731
  Transmission Date: 20241017
  Serious: Yes (Disabling)
  Sender: ORGANON
  Company Number: CN-ORGANON-O2407CHN002556

PATIENT
  Age: 81 Year
  Sex: Male
  Weight: 80 kg

DRUGS (3)
  1. DIPROSPAN [Suspect]
     Active Substance: BETAMETHASONE DIPROPIONATE\BETAMETHASONE SODIUM PHOSPHATE
     Indication: Inflammation
     Dosage: 1 ML, QD, INTRAVENOUS INJECTION
     Route: 042
     Dates: start: 20240717, end: 20240717
  2. LIDOCAINE HYDROCHLORIDE [Concomitant]
     Active Substance: LIDOCAINE HYDROCHLORIDE
     Indication: Erythema
     Dosage: 5 ML, 1D, INTRAVENOUS INJECTION
     Route: 042
     Dates: start: 20240717, end: 20240717
  3. LIDOCAINE HYDROCHLORIDE [Concomitant]
     Active Substance: LIDOCAINE HYDROCHLORIDE
     Indication: Joint swelling

REACTIONS (5)
  - Injection site pain [Recovering/Resolving]
  - Skin temperature increased [Unknown]
  - Injection site erythema [Unknown]
  - Injection site swelling [Unknown]
  - Tenderness [Unknown]

NARRATIVE: CASE EVENT DATE: 20240717
